FAERS Safety Report 5546215-0 (Version None)
Quarter: 2007Q4

REPORT INFORMATION
  Report Type: 
  Country: None (occurrence: None)
  Receive Date: 20071206
  Receipt Date: 20071206
  Transmission Date: 20080405
  Serious: No
  Sender: FDA-Public Use
  Company Number: None

PATIENT

DRUGS (2)
  1. ROCEPHIN [Suspect]
  2. EPINEPHRINE [Suspect]
     Dosage: IJECTABLE

REACTIONS (5)
  - CYANOSIS [None]
  - HEART RATE INCREASED [None]
  - HYPERSENSITIVITY [None]
  - MEDICATION ERROR [None]
  - VASOCONSTRICTION [None]
